FAERS Safety Report 13110965 (Version 2)
Quarter: 2017Q2

REPORT INFORMATION
  Report Type: Spontaneous
  Country: US (occurrence: US)
  Receive Date: 20170112
  Receipt Date: 20170406
  Transmission Date: 20170830
  Serious: Yes (Other)
  Sender: FDA-Public Use
  Company Number: US-PFIZER INC-2016579569

PATIENT
  Age: 90 Year
  Sex: Female
  Weight: 41 kg

DRUGS (3)
  1. AMLODIPINE BESILATE [Concomitant]
     Active Substance: AMLODIPINE BESYLATE
     Indication: BLOOD PRESSURE INCREASED
     Dosage: 2.5 MG, DAILY
     Dates: start: 2012
  2. PREMARIN [Suspect]
     Active Substance: ESTROGENS, CONJUGATED
     Indication: URETHRAL DISORDER
     Dosage: 1/4 OF CM INCH ON FINGER TIP, EVERY OTHER DAY OR EVERY 3RD DAY
     Dates: start: 20161101
  3. ESTRADIOL. [Suspect]
     Active Substance: ESTRADIOL
     Indication: URETHRAL DISORDER
     Dosage: 0.1 MG, EVERY OTHER DAY OR EVERY 3RD DAY
     Dates: start: 20161101

REACTIONS (2)
  - Product use in unapproved indication [Unknown]
  - Urinary tract infection [Recovered/Resolved]

NARRATIVE: CASE EVENT DATE: 2016
